FAERS Safety Report 14205194 (Version 1)
Quarter: 2017Q4

REPORT INFORMATION
  Report Type: Spontaneous
  Country: US (occurrence: US)
  Receive Date: 20171120
  Receipt Date: 20171120
  Transmission Date: 20180321
  Serious: Yes (Hospitalization)
  Sender: FDA-Public Use
  Company Number: US-MYLANLABS-2017M1072741

PATIENT
  Age: 15 Year
  Sex: Male

DRUGS (2)
  1. DICYCLOVERINE [Suspect]
     Active Substance: DICYCLOMINE HYDROCHLORIDE
     Indication: VOMITING
     Dosage: 20MG
     Route: 030
  2. DICYCLOVERINE [Suspect]
     Active Substance: DICYCLOMINE HYDROCHLORIDE
     Indication: NAUSEA
     Dosage: 20MG
     Route: 030

REACTIONS (5)
  - Injection site paraesthesia [Recovering/Resolving]
  - Administration site movement impairment [Recovering/Resolving]
  - Weight bearing difficulty [Recovering/Resolving]
  - Injection site hypoaesthesia [Recovering/Resolving]
  - Embolia cutis medicamentosa [Recovering/Resolving]
